FAERS Safety Report 9670203 (Version 1)
Quarter: 2013Q4

REPORT INFORMATION
  Report Type: Spontaneous
  Country: US (occurrence: None)
  Receive Date: 20131104
  Receipt Date: 20131104
  Transmission Date: 20140711
  Serious: Yes (Other)
  Sender: FDA-Public Use
  Company Number: 1270638

PATIENT
  Age: 67 Year
  Sex: Male

DRUGS (3)
  1. FLUVOXAMINE [Suspect]
     Indication: DEPRESSION
     Dates: start: 20120912, end: 20121229
  2. CISPLATIN [Suspect]
     Indication: SMALL CELL LUNG CANCER
     Dosage: ON DAYS 1-6
     Dates: start: 20121023, end: 20121029
  3. LEVOTHYROXINE SODIUM [Concomitant]

REACTIONS (5)
  - Serotonin syndrome [None]
  - Insomnia [None]
  - Malaise [None]
  - Anxiety [None]
  - Myoclonus [None]
